FAERS Safety Report 7845400-2 (Version None)
Quarter: 2011Q4

REPORT INFORMATION
  Report Type: 
  Country: None (occurrence: None)
  Receive Date: 20111025
  Receipt Date: 20111019
  Transmission Date: 20120403
  Serious: Yes (Other)
  Sender: FDA-Public Use
  Company Number: US-ABBOTT-11P-163-0842782-00

PATIENT
  Sex: Male

DRUGS (10)
  1. CELEBREX [Concomitant]
     Indication: ARTHRITIS
     Route: 048
  2. HYDROCHLOROTHIAZIDE [Concomitant]
     Indication: LYMPHOEDEMA
     Route: 048
  3. HUMIRA [Suspect]
     Indication: PSORIASIS
     Dates: start: 20080101, end: 20111010
  4. ALTACE [Concomitant]
     Indication: HYPERTENSION
     Route: 048
  5. AURANOFIN [Concomitant]
     Indication: PSORIATIC ARTHROPATHY
  6. CLARINEX [Concomitant]
     Indication: HYPERSENSITIVITY
     Route: 048
  7. ACTONEL [Concomitant]
     Indication: OSTEOPENIA
  8. CALCIUM W/VITAMIN D NOS [Concomitant]
     Indication: MINERAL SUPPLEMENTATION
     Dosage: VITAMIN D 500 MG
     Route: 048
  9. LYRICA [Concomitant]
     Indication: NEUROPATHY PERIPHERAL
     Route: 048
  10. SULFAZINE [Concomitant]
     Indication: PSORIATIC ARTHROPATHY
     Route: 048

REACTIONS (13)
  - THROMBOSIS [None]
  - ADHESION [None]
  - PNEUMONIA [None]
  - PHARYNGITIS STREPTOCOCCAL [None]
  - BURNING SENSATION [None]
  - ARTHRITIS [None]
  - HYPOAESTHESIA [None]
  - NECK PAIN [None]
  - GLUCOSE TOLERANCE IMPAIRED [None]
  - PARAESTHESIA [None]
  - PSORIASIS [None]
  - PSORIATIC ARTHROPATHY [None]
  - INTERVERTEBRAL DISC DISORDER [None]
